FAERS Safety Report 4973516-7 (Version None)
Quarter: 2006Q2

REPORT INFORMATION
  Report Type: 
  Country: None (occurrence: None)
  Receive Date: 20060413
  Receipt Date: 20060413
  Transmission Date: 20061013
  Serious: Yes (Other)
  Sender: FDA-Public Use
  Company Number: None

PATIENT
  Age: 51 Year
  Sex: Male
  Weight: 103 kg

DRUGS (15)
  1. COLESTIPOL HCL [Suspect]
  2. FOSINOPRIL NA [Concomitant]
  3. METFORMIN HYDROCHLORIDE [Concomitant]
  4. GLYBURIDE [Concomitant]
  5. ASPIRIN [Concomitant]
  6. LEVOTHYROXINE SODIUM [Concomitant]
  7. HYDROCHLOROTHIAZIDE [Concomitant]
  8. ISOSORBIDE MONONITRATE [Concomitant]
  9. OMEPRAZOLE [Concomitant]
  10. METOPROLOL TARTRATE [Concomitant]
  11. NITROGLYCERIN [Concomitant]
  12. SIMVASTATIN [Concomitant]
  13. COLESTIPOL HCL [Concomitant]
  14. UREA [Concomitant]
  15. RABEPRAZOLE NA [Concomitant]

REACTIONS (1)
  - MYALGIA [None]
